FAERS Safety Report 7053590-7 (Version None)
Quarter: 2010Q4

REPORT INFORMATION
  Report Type: 
  Country: None (occurrence: None)
  Receive Date: 20101020
  Receipt Date: 20101012
  Transmission Date: 20110411
  Serious: Yes (Death)
  Sender: FDA-Public Use
  Company Number: JP-ROCHE-732321

PATIENT
  Age: 70 Year
  Weight: 51 kg

DRUGS (7)
  1. PEGASYS [Suspect]
     Route: 058
     Dates: start: 20091118
  2. COPEGUS [Suspect]
     Dosage: NOTE: AMOUNT 2.
     Route: 048
     Dates: start: 20091118, end: 20100929
  3. FLUVASTATIN [Concomitant]
     Route: 048
     Dates: start: 20091130
  4. PURSENNID [Concomitant]
     Route: 048
     Dates: start: 20100105
  5. EPADEL [Concomitant]
     Route: 048
     Dates: start: 20091228
  6. GASLON N [Concomitant]
     Route: 048
     Dates: start: 20100325
  7. DIOVAN [Concomitant]
     Route: 048
     Dates: start: 20100209

REACTIONS (1)
  - SUBARACHNOID HAEMORRHAGE [None]
